FAERS Safety Report 4622270-7 (Version None)
Quarter: 2005Q1

REPORT INFORMATION
  Report Type: 
  Country: None (occurrence: None)
  Receive Date: 20050324
  Receipt Date: 20050324
  Transmission Date: 20050727
  Serious: No
  Sender: FDA-Public Use
  Company Number: None

PATIENT
  Age: 48 Year
  Sex: Female
  Weight: 65.7716 kg

DRUGS (3)
  1. LEVAQUIN [Suspect]
     Indication: HEADACHE
     Dosage: 500 MG DAILY  ORAL
     Route: 048
     Dates: start: 20050304, end: 20050323
  2. LEVAQUIN [Suspect]
     Indication: NASAL POLYPS
     Dosage: 500 MG DAILY  ORAL
     Route: 048
     Dates: start: 20050304, end: 20050323
  3. LEVAQUIN [Suspect]
     Indication: SINUSITIS
     Dosage: 500 MG DAILY  ORAL
     Route: 048
     Dates: start: 20050304, end: 20050323

REACTIONS (8)
  - ABASIA [None]
  - ARTHRALGIA [None]
  - DYSSTASIA [None]
  - MYALGIA [None]
  - NECK PAIN [None]
  - PAIN [None]
  - PAIN IN EXTREMITY [None]
  - SLEEP DISORDER DUE TO GENERAL MEDICAL CONDITION, INSOMNIA TYPE [None]
